FAERS Safety Report 17754874 (Version 2)
Quarter: 2020Q3

REPORT INFORMATION
  Report Type: Spontaneous
  Country: US (occurrence: US)
  Receive Date: 20200507
  Receipt Date: 20200722
  Transmission Date: 20201102
  Serious: No
  Sender: FDA-Public Use
  Company Number: US-ASTRAZENECA-2020SE59650

PATIENT
  Sex: Female

DRUGS (1)
  1. SYMBICORT [Suspect]
     Active Substance: BUDESONIDE\FORMOTEROL FUMARATE DIHYDRATE
     Dosage: 160/4.5 MCG SYMBICORT FOR 3 OR 4 YEARS , 2 PUFF ONCE DAILY, SOMETIMES USES IT AS NEEDED
     Route: 055

REACTIONS (4)
  - Device issue [Unknown]
  - Intentional product misuse [Unknown]
  - Product dose omission issue [Unknown]
  - Suffocation feeling [Unknown]
